FAERS Safety Report 5692877-7 (Version None)
Quarter: 2008Q2

REPORT INFORMATION
  Report Type: 
  Country: None (occurrence: None)
  Receive Date: 20080401
  Receipt Date: 20080320
  Transmission Date: 20081010
  Serious: Yes (Other)
  Sender: FDA-Public Use
  Company Number: S08-FRA-01049-01

PATIENT
  Age: 61 Year
  Sex: Female
  Weight: 67 kg

DRUGS (3)
  1. ESCITALOPRAM [Suspect]
     Indication: DEPRESSION
     Dosage: 10 MG QD PO
     Route: 048
     Dates: start: 20080214, end: 20080310
  2. LEVOTHYROXINE SODIUM [Concomitant]
  3. LEXOMIL (BROMAZEPAM) [Concomitant]

REACTIONS (2)
  - SINUS ARRHYTHMIA [None]
  - SINUS TACHYCARDIA [None]
